FAERS Safety Report 5730212-6 (Version None)
Quarter: 2008Q2

REPORT INFORMATION
  Report Type: 
  Country: None (occurrence: None)
  Receive Date: 20080505
  Receipt Date: 20080505
  Transmission Date: 20081010
  Serious: Yes (Hospitalization)
  Sender: FDA-Public Use
  Company Number: None

PATIENT
  Sex: Female
  Weight: 53.4 kg

DRUGS (1)
  1. TEMOZOLOMIDE [Suspect]
     Dosage: 4830 MG

REACTIONS (11)
  - DISEASE PROGRESSION [None]
  - DRUG DOSE OMISSION [None]
  - GLAUCOMA [None]
  - HEADACHE [None]
  - HEMIPARESIS [None]
  - NAUSEA [None]
  - NERVOUS SYSTEM DISORDER [None]
  - OEDEMA [None]
  - RADIATION INJURY [None]
  - SWELLING [None]
  - VOMITING [None]
